FAERS Safety Report 11810730 (Version 2)
Quarter: 2015Q4

REPORT INFORMATION
  Report Type: Spontaneous
  Country: CN (occurrence: CN)
  Receive Date: 20151208
  Receipt Date: 20151222
  Transmission Date: 20160305
  Serious: Yes (Other)
  Sender: FDA-Public Use
  Company Number: CN-GLAXOSMITHKLINE-CN2015GSK173982

PATIENT
  Age: 8 Year
  Sex: Male
  Weight: 26.5 kg

DRUGS (3)
  1. SERETIDE [Suspect]
     Active Substance: FLUTICASONE FUROATE\SALMETEROL XINAFOATE
     Indication: ASTHMA
     Dosage: 1 PUFF(S), QOD
     Route: 055
     Dates: start: 2012
  2. SERETIDE [Suspect]
     Active Substance: FLUTICASONE FUROATE\SALMETEROL XINAFOATE
     Dosage: 1 PUFF(S), QD, ONE PUFF EVERY NIGHT
     Route: 055
     Dates: start: 20151029
  3. SERETIDE [Suspect]
     Active Substance: FLUTICASONE FUROATE\SALMETEROL XINAFOATE
     Dosage: 1 PUFF(S), BID, ONE PUFF PER AM + PM
     Route: 055
     Dates: start: 20150822, end: 20151028

REACTIONS (4)
  - Pneumonia [Recovered/Resolved]
  - Disease recurrence [Unknown]
  - Inappropriate schedule of drug administration [Unknown]
  - Adenoidal hypertrophy [Unknown]

NARRATIVE: CASE EVENT DATE: 2012
